FAERS Safety Report 14922561 (Version 3)
Quarter: 2018Q2

REPORT INFORMATION
  Report Type: Spontaneous
  Country: US (occurrence: US)
  Receive Date: 20180522
  Receipt Date: 20180524
  Transmission Date: 20180711
  Serious: No
  Sender: FDA-Public Use
  Company Number: US-PFIZER INC-2018206700

PATIENT
  Age: 40 Year
  Sex: Female
  Weight: 77.98 kg

DRUGS (4)
  1. LYRICA [Suspect]
     Active Substance: PREGABALIN
     Indication: PAIN
     Dosage: 1 DF, DAILY (ONE CAPSULE DAILY FOR 2 WEEKS)
     Route: 048
     Dates: start: 2017
  2. TRIAMCINOLONE ACETONIDE. [Concomitant]
     Active Substance: TRIAMCINOLONE ACETONIDE
     Indication: DERMATITIS ATOPIC
     Dosage: UNK, DAILY
     Route: 061
  3. LYRICA [Suspect]
     Active Substance: PREGABALIN
     Dosage: 150 MG, DAILY (THREE 50-MG CAPSULES)
     Route: 048
     Dates: end: 201712
  4. LYRICA [Suspect]
     Active Substance: PREGABALIN
     Dosage: 2 DF, DAILY (TWO CAPSULES DAILY FOR 2 WEEKS)
     Route: 048

REACTIONS (2)
  - Drug dose omission [Unknown]
  - Somnolence [Unknown]

NARRATIVE: CASE EVENT DATE: 2017
